FAERS Safety Report 22022859 (Version 3)
Quarter: 2023Q1

REPORT INFORMATION
  Report Type: Spontaneous
  Country: IR (occurrence: IR)
  Receive Date: 20230222
  Receipt Date: 20230315
  Transmission Date: 20230418
  Serious: Yes (Death, Hospitalization, Other)
  Sender: FDA-Public Use
  Company Number: IR-SA-2023SA057882

PATIENT

DRUGS (1)
  1. ALDURAZYME [Suspect]
     Active Substance: LARONIDASE
     Indication: Glycogen storage disease type II
     Dosage: 20 MG/KG, QW
     Route: 065
     Dates: start: 201910, end: 202301

REACTIONS (4)
  - Suspected COVID-19 [Fatal]
  - Nasopharyngitis [Fatal]
  - Respiration abnormal [Fatal]
  - Respiratory failure [Fatal]
